FAERS Safety Report 23336485 (Version 2)
Quarter: 2024Q2

REPORT INFORMATION
  Report Type: Report from Study
  Country: US (occurrence: US)
  Receive Date: 20231226
  Receipt Date: 20240422
  Transmission Date: 20240717
  Serious: No
  Sender: FDA-Public Use
  Company Number: US-002147023-NVSC2023US273305

PATIENT
  Sex: Female

DRUGS (2)
  1. COSENTYX [Suspect]
     Active Substance: SECUKINUMAB
     Indication: Psoriasis
     Dosage: 300 MG, UNKNOWN
     Route: 065
     Dates: end: 202205
  2. COSENTYX [Suspect]
     Active Substance: SECUKINUMAB
     Indication: Psoriatic arthropathy
     Dosage: UNK, UNKNOWN
     Route: 065

REACTIONS (2)
  - Arthralgia [Unknown]
  - Psoriasis [Unknown]
